FAERS Safety Report 7075161-9 (Version None)
Quarter: 2010Q4

REPORT INFORMATION
  Report Type: 
  Country: None (occurrence: None)
  Receive Date: 20101029
  Receipt Date: 20100519
  Transmission Date: 20110411
  Serious: No
  Sender: FDA-Public Use
  Company Number: US-WYE-H15323710

PATIENT
  Age: 28 Year
  Sex: Female
  Weight: 55.84 kg

DRUGS (1)
  1. ADVIL PM [Suspect]
     Indication: INSOMNIA
     Dosage: 1-2 CAPLETS AS NEEDED
     Route: 048
     Dates: start: 20090101, end: 20091201

REACTIONS (1)
  - NIGHTMARE [None]
